FAERS Safety Report 8580422-8 (Version None)
Quarter: 2012Q3

REPORT INFORMATION
  Report Type: 
  Country: None (occurrence: None)
  Receive Date: 20120808
  Receipt Date: 20120802
  Transmission Date: 20120928
  Serious: Yes (Other)
  Sender: FDA-Public Use
  Company Number: US-ROXANE LABORATORIES, INC.-2012-RO-01633RO

PATIENT
  Age: 12 Year
  Sex: Male

DRUGS (2)
  1. MESALAMINE [Suspect]
     Indication: CROHN'S DISEASE
  2. MERCAPTOPURINE [Suspect]
     Indication: CROHN'S DISEASE

REACTIONS (1)
  - NON-HODGKIN'S LYMPHOMA [None]
